FAERS Safety Report 11801688 (Version 1)
Quarter: 2015Q4

REPORT INFORMATION
  Report Type: Spontaneous
  Country: US (occurrence: US)
  Receive Date: 20151204
  Receipt Date: 20151204
  Transmission Date: 20160305
  Serious: No
  Sender: FDA-Public Use
  Company Number: US-JNJFOC-20151107817

PATIENT
  Sex: Female
  Weight: 70.31 kg

DRUGS (3)
  1. GLEEVEC [Suspect]
     Active Substance: IMATINIB MESYLATE
     Indication: SKIN CANCER
     Route: 048
     Dates: start: 201304, end: 201402
  2. KETOCONAZOLE. [Suspect]
     Active Substance: KETOCONAZOLE
     Indication: PSORIASIS
     Route: 061
     Dates: start: 2015
  3. KETOCONAZOLE. [Suspect]
     Active Substance: KETOCONAZOLE
     Indication: PSORIASIS
     Route: 061
     Dates: start: 2013, end: 2013

REACTIONS (6)
  - Product lot number issue [Unknown]
  - Hair texture abnormal [Unknown]
  - Burning sensation [Unknown]
  - Acne [Unknown]
  - Rosacea [Unknown]
  - Pruritus [Unknown]

NARRATIVE: CASE EVENT DATE: 2014
